FAERS Safety Report 7648946-5 (Version None)
Quarter: 2011Q3

REPORT INFORMATION
  Report Type: 
  Country: None (occurrence: None)
  Receive Date: 20110801
  Receipt Date: 20110725
  Transmission Date: 20111222
  Serious: Yes (Hospitalization)
  Sender: FDA-Public Use
  Company Number: IE-BRISTOL-MYERS SQUIBB COMPANY-15881717

PATIENT
  Age: 59 Year
  Sex: Female

DRUGS (4)
  1. SERETIDE [Concomitant]
     Dosage: INHALER, 1 DF : 1 PUFF
  2. OXYCONTIN [Concomitant]
     Dates: start: 20110601
  3. IPILIMUMAB [Suspect]
     Indication: MALIGNANT MELANOMA
     Dosage: 3 MG/KG
     Route: 042
     Dates: start: 20110617
  4. PREGABALIN [Concomitant]
     Dates: start: 20110601

REACTIONS (3)
  - SEPSIS [None]
  - RENAL IMPAIRMENT [None]
  - CELLULITIS [None]
